FAERS Safety Report 5849623-3 (Version None)
Quarter: 2008Q3

REPORT INFORMATION
  Report Type: 
  Country: None (occurrence: None)
  Receive Date: 20080819
  Receipt Date: 20080808
  Transmission Date: 20090109
  Serious: Yes (Life-Threatening)
  Sender: FDA-Public Use
  Company Number: GB-ROCHE-580275

PATIENT
  Age: 4 Month
  Sex: Female
  Weight: 8 kg

DRUGS (1)
  1. LARIAM [Suspect]
     Indication: MALARIA
     Dosage: REPORTED AS MEFLOQUINE GIVEN 'CRUSHED IN WATER'
     Route: 048
     Dates: start: 20080716, end: 20080716

REACTIONS (2)
  - CRYING [None]
  - DYSPNOEA [None]
